FAERS Safety Report 7455013-2 (Version None)
Quarter: 2011Q2

REPORT INFORMATION
  Report Type: 
  Country: None (occurrence: None)
  Receive Date: 20110503
  Receipt Date: 20110427
  Transmission Date: 20111010
  Serious: Yes (Hospitalization)
  Sender: FDA-Public Use
  Company Number: FR-PFIZER INC-2011090222

PATIENT
  Age: 74 Year
  Sex: Female

DRUGS (6)
  1. VASTAREL [Concomitant]
  2. XANAX [Suspect]
     Dosage: UNK
     Route: 048
     Dates: start: 20100905, end: 20101001
  3. TAHOR [Concomitant]
     Dosage: 10 MG, UNK
  4. AMLODIPINE BESYLATE [Concomitant]
     Dosage: 5 MG, UNK
  5. FLUDEX [Concomitant]
  6. TRILEPTAL [Suspect]
     Dosage: 1 DF, 1X/DAY
     Route: 048
     Dates: start: 20100926, end: 20101001

REACTIONS (4)
  - DRUG ERUPTION [None]
  - ALTERED STATE OF CONSCIOUSNESS [None]
  - DISORIENTATION [None]
  - FALL [None]
